FAERS Safety Report 6107454-3 (Version None)
Quarter: 2009Q1

REPORT INFORMATION
  Report Type: 
  Country: None (occurrence: None)
  Receive Date: 20090309
  Receipt Date: 20090121
  Transmission Date: 20090719
  Serious: Yes (Other)
  Sender: FDA-Public Use
  Company Number: US-PFIZER INC-2008088743

PATIENT
  Sex: Female
  Weight: 70.3 kg

DRUGS (2)
  1. CHANTIX [Suspect]
     Indication: SMOKING CESSATION THERAPY
     Dates: start: 20081002
  2. XANAX [Concomitant]
     Indication: ANXIETY

REACTIONS (6)
  - FLUID RETENTION [None]
  - INCREASED APPETITE [None]
  - OEDEMA PERIPHERAL [None]
  - PAIN [None]
  - TOE AMPUTATION [None]
  - WEIGHT INCREASED [None]
